FAERS Safety Report 5817083-4 (Version None)
Quarter: 2008Q3

REPORT INFORMATION
  Report Type: 
  Country: None (occurrence: None)
  Receive Date: 20080722
  Receipt Date: 20080721
  Transmission Date: 20090109
  Serious: Yes (Other)
  Sender: FDA-Public Use
  Company Number: US-BAYER-200819801NA

PATIENT
  Age: 33 Year
  Sex: Female
  Weight: 57 kg

DRUGS (6)
  1. MIRENA [Suspect]
     Indication: CONTRACEPTION
     Route: 015
     Dates: start: 20050301
  2. LORTAB [Concomitant]
     Indication: PAIN
  3. NEURONTIN [Concomitant]
     Dosage: TOTAL DAILY DOSE: 600 MG
     Route: 048
  4. METHOTREXATE [Concomitant]
  5. NORVASC [Concomitant]
  6. ENTERIC ASPIRIN [Concomitant]

REACTIONS (8)
  - ARTHRALGIA [None]
  - CREST SYNDROME [None]
  - OEDEMA PERIPHERAL [None]
  - PITTING OEDEMA [None]
  - PYREXIA [None]
  - RHEUMATOID ARTHRITIS [None]
  - SCLERODERMA [None]
  - VISION BLURRED [None]
